FAERS Safety Report 8561361 (Version 2)
Quarter: 2012Q4

REPORT INFORMATION
  Report Type: 
  Country: US (occurrence: US)
  Receive Date: 20120514
  Receipt Date: 20120911
  Transmission Date: 20130627
  Serious: Yes (Other)
  Sender: FDA-Public Use
  Company Number: US-RB-040159-12

PATIENT
  Sex: Male

DRUGS (1)
  1. SUBOXONE TABLETS [Suspect]
     Indication: DRUG DEPENDENCE
     Route: 064
     Dates: end: 2007

REACTIONS (2)
  - Foetal exposure during pregnancy [Recovered/Resolved]
  - Asperger^s disorder [Unknown]
